FAERS Safety Report 8362679-1 (Version None)
Quarter: 2012Q2

REPORT INFORMATION
  Report Type: 
  Country: None (occurrence: None)
  Receive Date: 20120516
  Receipt Date: 20110706
  Transmission Date: 20120825
  Serious: No
  Sender: FDA-Public Use
  Company Number: US-MYLANLABS-2011S1012029

PATIENT
  Age: 37 Year
  Sex: Male
  Weight: 104.33 kg

DRUGS (9)
  1. BUPROPION HYDROCHLORIDE [Suspect]
     Indication: DEPRESSION
     Dates: start: 20110101
  2. ALBUTEROL [Concomitant]
  3. PRAVASTATIN [Concomitant]
  4. NORCO [Concomitant]
  5. CELEXA [Concomitant]
  6. DIAZEPAM [Concomitant]
  7. PROAIR HFA [Concomitant]
  8. SEROQUEL [Concomitant]
  9. LISINOPRIL [Concomitant]

REACTIONS (2)
  - URINE AMPHETAMINE POSITIVE [None]
  - DRUG SCREEN FALSE POSITIVE [None]
